FAERS Safety Report 24269545 (Version 1)
Quarter: 2024Q3

REPORT INFORMATION
  Report Type: Spontaneous
  Country: US (occurrence: None)
  Receive Date: 20240830
  Receipt Date: 20240830
  Transmission Date: 20241016
  Serious: Yes (Death)
  Sender: Public
  Company Number: None

PATIENT
  Sex: Male
  Weight: 66.3 kg

DRUGS (4)
  1. CARBOPLATIN [Suspect]
     Active Substance: CARBOPLATIN
  2. ETOPOSIDE [Concomitant]
     Active Substance: ETOPOSIDE
  3. IFOSFAMIDE [Concomitant]
     Active Substance: IFOSFAMIDE
  4. MESNA [Concomitant]
     Active Substance: MESNA

REACTIONS (4)
  - Disease progression [None]
  - Stem cell transplant [None]
  - Transplant failure [None]
  - Cytoreductive surgery [None]

NARRATIVE: CASE EVENT DATE: 20240726
